FAERS Safety Report 9956296 (Version 1)
Quarter: 2014Q1

REPORT INFORMATION
  Report Type: Report from Study
  Country: US (occurrence: US)
  Receive Date: 20140304
  Receipt Date: 20140304
  Transmission Date: 20141002
  Serious: No
  Sender: FDA-Public Use
  Company Number: US-ABBVIE-13P-163-1086047-00

PATIENT
  Age: 68 Year
  Sex: Female

DRUGS (7)
  1. HUMIRA [Suspect]
     Indication: PSORIASIS
  2. PREMARIN [Concomitant]
     Indication: HOT FLUSH
     Dosage: LOWEST DOSE MADE DAILY
     Route: 048
  3. CRESTOR [Concomitant]
     Indication: BLOOD CHOLESTEROL INCREASED
     Dosage: 40MG DAILY
     Route: 048
  4. ANTIDEPRESSANT [Concomitant]
     Indication: DEPRESSION
     Dosage: DAILY
     Route: 048
  5. AMBIEN [Concomitant]
     Indication: INSOMNIA
     Route: 048
  6. TRAZODONE [Concomitant]
     Indication: INSOMNIA
     Dosage: AT BEDTIME
     Route: 048
  7. HYDROCODONE [Concomitant]
     Indication: SCIATICA
     Dosage: DAILY
     Route: 048

REACTIONS (2)
  - Cough [Recovering/Resolving]
  - Bronchitis [Recovering/Resolving]
